FAERS Safety Report 9420565 (Version 1)
Quarter: 2013Q3

REPORT INFORMATION
  Report Type: Spontaneous
  Country: US (occurrence: US)
  Receive Date: 20130725
  Receipt Date: 20130725
  Transmission Date: 20140515
  Serious: No
  Sender: FDA-Public Use
  Company Number: US-ABBOTT-13P-163-1107071-00

PATIENT
  Sex: 0

DRUGS (5)
  1. SYNTHROID [Suspect]
     Indication: HYPOTHYROIDISM
     Dosage: ALTERNATING WITH 75 MCG DOSE (5X PER WEEK)
  2. SYNTHROID [Suspect]
     Dosage: ALTERNATING WITH 88 MCG DOSE (2X PER WEEK)
  3. CABERGOLINE [Concomitant]
     Indication: PITUITARY TUMOUR BENIGN
     Dates: start: 200908, end: 201009
  4. CITRANATAL DHA [Concomitant]
     Indication: PRODUCT USED FOR UNKNOWN INDICATION
     Dosage: TABLET/CAPSULE
  5. VITAMIN D3 [Concomitant]
     Indication: PRODUCT USED FOR UNKNOWN INDICATION

REACTIONS (1)
  - Postpartum depression [Unknown]
